FAERS Safety Report 8662405 (Version 2)
Quarter: 2013Q1

REPORT INFORMATION
  Report Type: Spontaneous
  Country: US (occurrence: US)
  Receive Date: 20120712
  Receipt Date: 20130111
  Transmission Date: 20140127
  Serious: No
  Sender: FDA-Public Use
  Company Number: US-GLAXOSMITHKLINE-A0980794A

PATIENT
  Age: 83 Year
  Sex: Male

DRUGS (6)
  1. JALYN [Suspect]
     Indication: PROSTATOMEGALY
     Dosage: 1CAP PER DAY
     Route: 048
     Dates: start: 20120430
  2. B12 [Concomitant]
  3. TESTOSTERONE CYPIONATE [Concomitant]
  4. RECLAST [Concomitant]
  5. CITRACAL [Concomitant]
  6. BAYER ASPIRIN [Concomitant]

REACTIONS (2)
  - Constipation [Recovering/Resolving]
  - Somnolence [Unknown]
